FAERS Safety Report 20044702 (Version 1)
Quarter: 2021Q4

REPORT INFORMATION
  Report Type: Spontaneous
  Country: CN (occurrence: None)
  Receive Date: 20211108
  Receipt Date: 20211108
  Transmission Date: 20220303
  Serious: Yes (Life-Threatening, Other)
  Sender: FDA-Public Use
  Company Number: 2021A791902

PATIENT
  Age: 82 Year
  Sex: Male

DRUGS (4)
  1. ROSUVASTATIN [Suspect]
     Active Substance: ROSUVASTATIN
     Indication: Pleural fibrosis
     Dosage: 20 MG, QD
     Route: 048
  2. BUTYLPHTHALIDE [Concomitant]
     Active Substance: BUTYLPHTHALIDE
     Indication: Neurological symptom
     Dosage: 100 ML, QD
  3. CLOPIDOGREL [Concomitant]
     Active Substance: CLOPIDOGREL BISULFATE
     Indication: Platelet aggregation normal
     Dosage: 75 MG, QD
     Route: 065
  4. CITICOLINE [Concomitant]
     Active Substance: CITICOLINE
     Indication: Cerebral disorder
     Dosage: 0.5 G, QD
     Route: 041

REACTIONS (3)
  - Acute kidney injury [Unknown]
  - Multiple organ dysfunction syndrome [Unknown]
  - Rhabdomyolysis [Unknown]
